FAERS Safety Report 16673205 (Version 1)
Quarter: 2019Q3

REPORT INFORMATION
  Report Type: Spontaneous
  Country: US (occurrence: US)
  Receive Date: 20190806
  Receipt Date: 20190806
  Transmission Date: 20191004
  Serious: Yes (Other)
  Sender: FDA-Public Use
  Company Number: PHHY2019US124198

PATIENT
  Sex: Male

DRUGS (8)
  1. VINCRISTINE [Suspect]
     Active Substance: VINCRISTINE
     Indication: ACUTE LYMPHOCYTIC LEUKAEMIA
     Dosage: UNK
     Route: 065
     Dates: end: 20190513
  2. JAKAFI [Suspect]
     Active Substance: RUXOLITINIB
     Indication: ACUTE LYMPHOCYTIC LEUKAEMIA
     Dosage: 65 MG, BID ((DISCONTINUOUS DOSING: 14 DAYS ON/14 DAYS OFF))
     Route: 065
     Dates: start: 20181229
  3. JAKAFI [Suspect]
     Active Substance: RUXOLITINIB
     Dosage: 75 MG, BID (DISCONTINUOUS)
     Route: 065
     Dates: start: 20190308, end: 20190513
  4. ARA-C [Concomitant]
     Active Substance: CYTARABINE
     Indication: ACUTE LYMPHOCYTIC LEUKAEMIA
     Dosage: LP WEEKLY
     Route: 037
  5. METHOTREXATE. [Suspect]
     Active Substance: METHOTREXATE
     Indication: ACUTE LYMPHOCYTIC LEUKAEMIA
     Dosage: UNK
     Route: 037
     Dates: end: 20190513
  6. JAKAFI [Suspect]
     Active Substance: RUXOLITINIB
     Dosage: UNK
     Route: 065
     Dates: end: 20190515
  7. 6-MERCAPTOPURINE MONOHYDRATE [Suspect]
     Active Substance: MERCAPTOPURINE
     Indication: ACUTE LYMPHOCYTIC LEUKAEMIA
     Dosage: UNK
     Route: 065
     Dates: end: 20190513
  8. HYDROCORTISONE. [Concomitant]
     Active Substance: HYDROCORTISONE
     Indication: ACUTE LYMPHOCYTIC LEUKAEMIA
     Dosage: LP WEEKLY
     Route: 037

REACTIONS (6)
  - Blast cells present [Recovering/Resolving]
  - Neutropenia [Recovering/Resolving]
  - Off label use [Unknown]
  - Intentional product misuse [Unknown]
  - Leukaemia recurrent [Recovering/Resolving]
  - Central nervous system leukaemia [Not Recovered/Not Resolved]

NARRATIVE: CASE EVENT DATE: 20181229
